FAERS Safety Report 8051072-7 (Version None)
Quarter: 2012Q1

REPORT INFORMATION
  Report Type: 
  Country: None (occurrence: None)
  Receive Date: 20120117
  Receipt Date: 20120111
  Transmission Date: 20120608
  Serious: Yes (Hospitalization)
  Sender: FDA-Public Use
  Company Number: PHEH2011US009876

PATIENT
  Sex: Male
  Weight: 97 kg

DRUGS (3)
  1. NEUPOGEN [Concomitant]
     Indication: NEUTROPENIA
     Dosage: 480 MG 2-3 X WEEKS
     Route: 058
  2. BLOOD TRANSFUSION, AUXILIARY PRODUCTS [Concomitant]
  3. EXJADE [Suspect]
     Indication: IRON OVERLOAD
     Dosage: 2500 MG, QD
     Route: 048

REACTIONS (3)
  - EAR INFECTION [None]
  - FALL [None]
  - OTITIS MEDIA [None]
